FAERS Safety Report 14732738 (Version 1)
Quarter: 2018Q2

REPORT INFORMATION
  Report Type: Spontaneous
  Country: DE (occurrence: DE)
  Receive Date: 20180409
  Receipt Date: 20180409
  Transmission Date: 20180711
  Serious: Yes (Other)
  Sender: FDA-Public Use
  Company Number: DE-TEVA-2018-DE-879727

PATIENT
  Age: 1 Day
  Sex: Female
  Weight: 2.44 kg

DRUGS (3)
  1. FOLIO STERIPHARM [Concomitant]
     Indication: PROPHYLAXIS OF NEURAL TUBE DEFECT
     Dosage: .4 MILLIGRAM DAILY; 0.4 [MG/D ]
     Route: 064
     Dates: start: 20160125, end: 20160920
  2. LAMOTRIGINE. [Suspect]
     Active Substance: LAMOTRIGINE
     Indication: EPILEPSY
     Dosage: 600 [MG/D ]/ FROM GW 15 6/7 DOSAGE INCREASE TO 500MG/D, FROM GW 24 4/7: 600 MG/D
     Route: 064
     Dates: start: 20160125, end: 20161027
  3. METOPROLOL. [Suspect]
     Active Substance: METOPROLOL
     Indication: HYPERTENSION
     Dosage: 47.5 MILLIGRAM DAILY; 47.5 [MG/D ]/ FOR SEVERAL YEARS; MOST PROBABLY TAKEN UNTIL DELIVERY AND FURTHE
     Route: 064
     Dates: start: 20160125, end: 20160920

REACTIONS (3)
  - Selective eating disorder [Recovered/Resolved]
  - Small for dates baby [Not Recovered/Not Resolved]
  - Somnolence [Recovered/Resolved]

NARRATIVE: CASE EVENT DATE: 20161027
